FAERS Safety Report 18163259 (Version 2)
Quarter: 2020Q4

REPORT INFORMATION
  Report Type: Spontaneous
  Country: US (occurrence: US)
  Receive Date: 20200818
  Receipt Date: 20201022
  Transmission Date: 20210113
  Serious: Yes (Death)
  Sender: FDA-Public Use
  Company Number: US-IMMUNOMEDICS, INC.-2020IMMU000480

PATIENT
  Sex: Female

DRUGS (1)
  1. TRODELVY [Suspect]
     Active Substance: SACITUZUMAB GOVITECAN-HZIY
     Indication: PRODUCT USED FOR UNKNOWN INDICATION
     Dosage: RECEIVED ONE IV INFUSION
     Route: 042

REACTIONS (2)
  - Infection [Not Recovered/Not Resolved]
  - Death [Fatal]
